FAERS Safety Report 4577254-4 (Version None)
Quarter: 2005Q1

REPORT INFORMATION
  Report Type: 
  Country: None (occurrence: None)
  Receive Date: 20050209
  Receipt Date: 20050126
  Transmission Date: 20050727
  Serious: Yes (Death)
  Sender: FDA-Public Use
  Company Number: 2004AL000696

PATIENT
  Age: 15 Year
  Sex: Male

DRUGS (10)
  1. ACETAMINOPHEN [Suspect]
     Dosage: PO
     Route: 048
  2. ACETAMINOPHEN [Suspect]
     Dosage: PO
     Route: 048
  3. BUPROPION [Suspect]
     Dosage: PO
     Route: 048
  4. ASPIRIN [Suspect]
     Dosage: PO
     Route: 048
  5. FLUOXETINE CAPSULES, 20 MG (SIEGFRIED LTD.) [Suspect]
     Dosage: PO
     Route: 048
  6. FLUOXETINE ORAL SOLUTION USP, 20MG/5ML (ALPHARMA) [Suspect]
     Dosage: PO
     Route: 048
  7. CAFFEINE [Suspect]
     Dosage: PO
     Route: 048
  8. VALPROIC ACID [Suspect]
     Dosage: PO
     Route: 048
  9. SERTRALINE [Suspect]
     Dosage: PO
     Route: 048
  10. ASPIRIN/ACETAMINOPHEN/CAFFEINE [Suspect]
     Dosage: PO
     Route: 048

REACTIONS (14)
  - AGGRESSION [None]
  - AGITATION [None]
  - ANION GAP ABNORMAL [None]
  - ATRIOVENTRICULAR BLOCK [None]
  - BASE EXCESS INCREASED [None]
  - BRADYCARDIA [None]
  - CARDIAC ARREST [None]
  - COMPLETED SUICIDE [None]
  - CONVULSION [None]
  - GRAND MAL CONVULSION [None]
  - MULTIPLE DRUG OVERDOSE [None]
  - PH BODY FLUID DECREASED [None]
  - PYREXIA [None]
  - VENTRICULAR EXTRASYSTOLES [None]
